FAERS Safety Report 9988636 (Version 2)
Quarter: 2014Q1

REPORT INFORMATION
  Report Type: Spontaneous
  Country: DE (occurrence: DE)
  Receive Date: 20140310
  Receipt Date: 20140328
  Transmission Date: 20141002
  Serious: Yes (Other)
  Sender: FDA-Public Use
  Company Number: DE-RANBAXY-2014RR-78614

PATIENT
  Age: 43 Year
  Sex: Male

DRUGS (2)
  1. CEFUROX BASICS 500 MG TABLETTEN [Suspect]
     Indication: PNEUMONIA
     Dosage: 2 X 500 MG PER DAY
     Route: 065
     Dates: start: 20140203, end: 20140214
  2. AMISULPRID LICH [Concomitant]
     Indication: PRODUCT USED FOR UNKNOWN INDICATION
     Dosage: 200 MG ONCE A DAY
     Route: 065

REACTIONS (4)
  - Skin burning sensation [Recovering/Resolving]
  - Pruritus [Recovering/Resolving]
  - Rash erythematous [Recovering/Resolving]
  - Inflammation [Recovering/Resolving]
